FAERS Safety Report 8233875-9 (Version None)
Quarter: 2012Q1

REPORT INFORMATION
  Report Type: 
  Country: None (occurrence: None)
  Receive Date: 20120321
  Receipt Date: 20120305
  Transmission Date: 20120608
  Serious: Yes (Other)
  Sender: FDA-Public Use
  Company Number: TPA2012A01365

PATIENT
  Age: 73 Year
  Sex: Male

DRUGS (2)
  1. COLCHICINE [Concomitant]
  2. ADENURIC (FEBUXOSTAT) [Suspect]
     Indication: GOUT
     Dosage: ORAL
     Route: 048
     Dates: start: 20111013, end: 20120112

REACTIONS (2)
  - GENERALISED ERYTHEMA [None]
  - PRURITUS [None]
